FAERS Safety Report 5818313-5 (Version None)
Quarter: 2008Q3

REPORT INFORMATION
  Report Type: 
  Country: None (occurrence: None)
  Receive Date: 20080722
  Receipt Date: 20080710
  Transmission Date: 20090109
  Serious: Yes (Death, Hospitalization, Other)
  Sender: FDA-Public Use
  Company Number: US-PFIZER INC-2008051938

PATIENT
  Sex: Female
  Weight: 102.1 kg

DRUGS (11)
  1. SILDENAFIL CITRATE [Suspect]
     Indication: PULMONARY HYPERTENSION
  2. SILDENAFIL CITRATE [Suspect]
     Dates: start: 20070101, end: 20070101
  3. ALL OTHER THERAPEUTIC PRODUCTS [Suspect]
     Indication: PULMONARY HYPERTENSION
     Dates: start: 20070101, end: 20071101
  4. TENORMIN [Concomitant]
  5. MONOPRIL [Concomitant]
  6. LASIX [Concomitant]
  7. K-DUR [Concomitant]
  8. ZOLOFT [Concomitant]
  9. LYRICA [Concomitant]
  10. WARFARIN SODIUM [Concomitant]
     Indication: PULMONARY EMBOLISM
  11. PLAVIX [Concomitant]
     Indication: CARDIAC DISORDER

REACTIONS (5)
  - DEATH [None]
  - DRUG INEFFECTIVE [None]
  - DYSPNOEA [None]
  - OXYGEN SATURATION DECREASED [None]
  - PNEUMONIA [None]
